FAERS Safety Report 18714409 (Version 2)
Quarter: 2021Q1

REPORT INFORMATION
  Report Type: Report from Study
  Country: None (occurrence: CA)
  Receive Date: 20210108
  Receipt Date: 20210204
  Transmission Date: 20210419
  Serious: Yes (Other)
  Sender: FDA-Public Use
  Company Number: CA-ABBVIE-21K-028-3715290-00

PATIENT
  Age: 54 Year
  Sex: Female

DRUGS (1)
  1. RINVOQ [Suspect]
     Active Substance: UPADACITINIB
     Indication: RHEUMATOID ARTHRITIS
     Route: 048
     Dates: start: 20201006

REACTIONS (9)
  - Walking aid user [Unknown]
  - Fear [Unknown]
  - Mobility decreased [Unknown]
  - Pain [Unknown]
  - Suicidal ideation [Unknown]
  - Gait disturbance [Unknown]
  - Stress [Unknown]
  - Arthropathy [Unknown]
  - Psychiatric symptom [Unknown]

NARRATIVE: CASE EVENT DATE: 202010
